FAERS Safety Report 10042976 (Version 1)
Quarter: 2014Q1

REPORT INFORMATION
  Report Type: Report from Study
  Country: GB (occurrence: GB)
  Receive Date: 20140328
  Receipt Date: 20140328
  Transmission Date: 20141002
  Serious: Yes (Hospitalization)
  Sender: FDA-Public Use
  Company Number: GB-ROCHE-1368195

PATIENT
  Age: 62 Year
  Sex: Male
  Weight: 91.5 kg

DRUGS (7)
  1. RITUXIMAB [Suspect]
     Indication: NON-HODGKIN^S LYMPHOMA UNSPECIFIED HISTOLOGY INDOLENT
     Route: 042
     Dates: start: 20140116
  2. BLINDED GS-1101 [Suspect]
     Indication: NON-HODGKIN^S LYMPHOMA UNSPECIFIED HISTOLOGY INDOLENT
     Route: 065
     Dates: start: 20140116, end: 20140214
  3. BLINDED GS-1101 [Suspect]
     Route: 065
     Dates: start: 20140227
  4. BENDAMUSTINE [Suspect]
     Indication: NON-HODGKIN^S LYMPHOMA UNSPECIFIED HISTOLOGY INDOLENT
     Route: 042
     Dates: start: 20140116
  5. CO-TRIMOXAZOLE [Concomitant]
     Route: 065
     Dates: start: 20140116
  6. ACICLOVIR [Concomitant]
     Route: 065
     Dates: start: 20140116
  7. ONDANSETRON [Concomitant]
     Route: 065
     Dates: start: 20140116

REACTIONS (2)
  - Dermatitis exfoliative [Recovered/Resolved]
  - Pyrexia [Recovered/Resolved]
